FAERS Safety Report 24799480 (Version 1)
Quarter: 2025Q1

REPORT INFORMATION
  Report Type: Spontaneous
  Country: CA (occurrence: CA)
  Receive Date: 20250102
  Receipt Date: 20250102
  Transmission Date: 20250409
  Serious: Yes (Life-Threatening)
  Sender: BAYER HEALTHCARE LLC
  Company Number: CA-BAYER-2025A000093

PATIENT
  Age: 51 Year
  Sex: Male

DRUGS (11)
  1. NAPROXEN SODIUM [Suspect]
     Active Substance: NAPROXEN SODIUM
     Indication: Pain
  2. NAPROXEN SODIUM [Suspect]
     Active Substance: NAPROXEN SODIUM
     Indication: Back pain
  3. TAMSULOSIN [Concomitant]
     Active Substance: TAMSULOSIN
  4. LEVETIRACETAM [Concomitant]
     Active Substance: LEVETIRACETAM
     Route: 065
  5. QUETIAPINE [Concomitant]
     Active Substance: QUETIAPINE
  6. CANNABIS SATIVA SUBSP. INDICA TOP [Concomitant]
     Active Substance: CANNABIS SATIVA SUBSP. INDICA TOP
  7. ALBUTEROL [Concomitant]
     Active Substance: ALBUTEROL
  8. FLUTICASONE [Concomitant]
     Active Substance: FLUTICASONE
  9. TYLENOL [Concomitant]
     Active Substance: ACETAMINOPHEN
     Route: 065
  10. PANTOPRAZOLE [Concomitant]
     Active Substance: PANTOPRAZOLE
  11. CYCLOBENZAPRINE [Concomitant]
     Active Substance: CYCLOBENZAPRINE

REACTIONS (2)
  - Duodenal ulcer perforation [Recovered/Resolved]
  - Duodenal ulcer repair [Recovered/Resolved]
